FAERS Safety Report 25877169 (Version 1)
Quarter: 2025Q4

REPORT INFORMATION
  Report Type: Spontaneous
  Country: US (occurrence: None)
  Receive Date: 20251002
  Receipt Date: 20251002
  Transmission Date: 20260118
  Serious: No
  Sender: FDA-CTU
  Company Number: None

PATIENT
  Age: 49 Year
  Sex: Female
  Weight: 87.54 kg

DRUGS (1)
  1. LYUMJEV [Suspect]
     Active Substance: INSULIN LISPRO-AABC
     Indication: Type 1 diabetes mellitus
     Dosage: OTHER QUANTITY : INTERNATIONAL UNIT(S) - IU?OTHER FREQUENCY : OTHER?
     Dates: start: 20230101, end: 20230201

REACTIONS (3)
  - Injection site erythema [None]
  - Injection site rash [None]
  - Injection site pain [None]

NARRATIVE: CASE EVENT DATE: 20250101
